FAERS Safety Report 25130611 (Version 1)
Quarter: 2025Q1

REPORT INFORMATION
  Report Type: Spontaneous
  Country: CN (occurrence: CN)
  Receive Date: 20250327
  Receipt Date: 20250327
  Transmission Date: 20250409
  Serious: Yes (Other)
  Sender: BAXTER
  Company Number: None

PATIENT
  Age: 4 Year
  Sex: Male

DRUGS (4)
  1. IFOSFAMIDE [Suspect]
     Active Substance: IFOSFAMIDE
     Indication: Chemotherapy
     Route: 041
     Dates: start: 20250218, end: 20250222
  2. ETOPOSIDE [Suspect]
     Active Substance: ETOPOSIDE
     Indication: Infection
     Route: 041
     Dates: start: 20250220, end: 20250222
  3. CYTARABINE [Suspect]
     Active Substance: CYTARABINE
     Indication: Chemotherapy
     Route: 041
     Dates: start: 20250220, end: 20250222
  4. METHOTREXATE [Suspect]
     Active Substance: METHOTREXATE
     Indication: Chemotherapy
     Route: 041
     Dates: start: 20250218, end: 20250218

REACTIONS (5)
  - Liver injury [Recovering/Resolving]
  - Hepatic enzyme increased [Not Recovered/Not Resolved]
  - Myelosuppression [Recovering/Resolving]
  - Pyrexia [Unknown]
  - Infection [Recovering/Resolving]

NARRATIVE: CASE EVENT DATE: 20250227
